FAERS Safety Report 9048543 (Version 1)
Quarter: 2013Q1

REPORT INFORMATION
  Report Type: Spontaneous
  Country: US (occurrence: None)
  Receive Date: 20130130
  Receipt Date: 20130130
  Transmission Date: 20140127
  Serious: Yes (Hospitalization)
  Sender: FDA-Public Use
  Company Number: None

PATIENT
  Age: 40 Year
  Sex: Female
  Weight: 155.6 kg

DRUGS (8)
  1. LOVENOX [Suspect]
     Indication: GASTRIC BYPASS
     Dosage: Q12HR  RECENT
     Route: 058
  2. COUMADIN [Suspect]
     Indication: GASTRIC BYPASS
     Dosage: RECENT
     Route: 048
  3. LISINOPRIL [Concomitant]
  4. ONGLYZA [Concomitant]
  5. ADVAIR [Concomitant]
  6. ALBUTEROL [Concomitant]
  7. NOVOLOG [Concomitant]
  8. OMEPRAZOLE [Concomitant]

REACTIONS (4)
  - Haemorrhage [None]
  - Peritoneal haemorrhage [None]
  - Abdominal pain [None]
  - Thrombosis [None]
